FAERS Safety Report 7887932-7 (Version None)
Quarter: 2011Q4

REPORT INFORMATION
  Report Type: 
  Country: None (occurrence: None)
  Receive Date: 20111103
  Receipt Date: 20111021
  Transmission Date: 20120403
  Serious: Yes (Hospitalization)
  Sender: FDA-Public Use
  Company Number: US-ACTELION-A-NJ2010-37389

PATIENT

DRUGS (5)
  1. COUMADIN [Concomitant]
  2. TRACLEER [Suspect]
     Indication: PULMONARY ARTERIAL HYPERTENSION
     Dosage: UNK
     Route: 048
     Dates: start: 20100309, end: 20110101
  3. REVATIO [Concomitant]
  4. TADALAFIL [Concomitant]
  5. CALCIUM CHANNEL BLOCKERS [Concomitant]

REACTIONS (8)
  - LOSS OF CONSCIOUSNESS [None]
  - BLOOD POTASSIUM INCREASED [None]
  - LACERATION [None]
  - MYOCARDIAL INFARCTION [None]
  - CARDIOVERSION [None]
  - RESPIRATORY ARREST [None]
  - DIALYSIS [None]
  - ABDOMINAL INFECTION [None]
